FAERS Safety Report 20533723 (Version 1)
Quarter: 2022Q1

REPORT INFORMATION
  Report Type: Spontaneous
  Country: CN (occurrence: None)
  Receive Date: 20220301
  Receipt Date: 20220301
  Transmission Date: 20220423
  Serious: Yes (Hospitalization, Other)
  Sender: FDA-Public Use
  Company Number: 2022A082743

PATIENT
  Age: 17632 Day
  Sex: Female
  Weight: 68 kg

DRUGS (1)
  1. BYETTA [Suspect]
     Active Substance: EXENATIDE
     Indication: Blood glucose
     Dosage: 5 UG, TWICE EVERY ONE DAY
     Route: 058
     Dates: start: 20220208, end: 20220213

REACTIONS (1)
  - Ketoacidosis [Recovering/Resolving]

NARRATIVE: CASE EVENT DATE: 20220213
